FAERS Safety Report 5235762-7 (Version None)
Quarter: 2007Q1

REPORT INFORMATION
  Report Type: 
  Country: None (occurrence: None)
  Receive Date: 20061208
  Receipt Date: 20060620
  Transmission Date: 20070707
  Serious: Yes (Other)
  Sender: FDA-Public Use
  Company Number: 2006UW13049

PATIENT
  Age: 45 Year
  Sex: Female
  Weight: 74.842 kg

DRUGS (5)
  1. CRESTOR [Suspect]
     Indication: BLOOD CHOLESTEROL INCREASED
     Dosage: 5 MG PO
     Route: 048
  2. AVALIDE [Concomitant]
  3. EFFEXOR [Concomitant]
  4. ACIPHEX [Concomitant]
  5. SEASONALE [Concomitant]

REACTIONS (1)
  - SWOLLEN TONGUE [None]
